FAERS Safety Report 23107405 (Version 2)
Quarter: 2024Q1

REPORT INFORMATION
  Report Type: Spontaneous
  Country: US (occurrence: US)
  Receive Date: 20231026
  Receipt Date: 20240328
  Transmission Date: 20240409
  Serious: Yes (Death, Other)
  Sender: FDA-Public Use
  Company Number: US-BRISTOL-MYERS SQUIBB COMPANY-2023-151258

PATIENT
  Age: 54 Year
  Sex: Male

DRUGS (13)
  1. REVLIMID [Suspect]
     Active Substance: LENALIDOMIDE
     Indication: Plasma cell myeloma
     Dosage: 25MG D1 - 21, 7 DAYS OFF
     Route: 048
     Dates: start: 20230524
  2. MORPHINE [Concomitant]
     Active Substance: MORPHINE
     Indication: Product used for unknown indication
  3. HYDROMORPHONE [Concomitant]
     Active Substance: HYDROMORPHONE
     Indication: Product used for unknown indication
  4. ATIVAN [Concomitant]
     Active Substance: LORAZEPAM
     Indication: Product used for unknown indication
  5. HALOPERIDOL [Concomitant]
     Active Substance: HALOPERIDOL
     Indication: Nausea
     Route: 048
     Dates: start: 20230703
  6. HALOPERIDOL [Concomitant]
     Active Substance: HALOPERIDOL
     Indication: Vomiting
  7. DRONABINOL [Concomitant]
     Active Substance: DRONABINOL
     Indication: Product used for unknown indication
  8. MS CONTIN [Concomitant]
     Active Substance: MORPHINE SULFATE
     Indication: Pyrexia
     Route: 048
     Dates: start: 20230703
  9. MS CONTIN [Concomitant]
     Active Substance: MORPHINE SULFATE
     Indication: Pain
  10. METOPROLOL [Concomitant]
     Active Substance: METOPROLOL
     Indication: Blood pressure abnormal
     Route: 048
  11. ACYCLOVIR [Concomitant]
     Active Substance: ACYCLOVIR
     Indication: Prophylaxis
     Route: 048
     Dates: start: 20221222
  12. MORPHINE SULFATE [Concomitant]
     Active Substance: MORPHINE SULFATE
     Indication: Pyrexia
     Route: 048
     Dates: start: 20230703
  13. MORPHINE SULFATE [Concomitant]
     Active Substance: MORPHINE SULFATE
     Indication: Pain

REACTIONS (2)
  - Plasma cell myeloma [Fatal]
  - Treatment noncompliance [Unknown]
